FAERS Safety Report 11164057 (Version 1)
Quarter: 2015Q2

REPORT INFORMATION
  Report Type: Spontaneous
  Country: US (occurrence: US)
  Receive Date: 20150604
  Receipt Date: 20150604
  Transmission Date: 20150821
  Serious: No
  Sender: FDA-Public Use
  Company Number: US-ELI_LILLY_AND_COMPANY-US201505008701

PATIENT
  Sex: Female

DRUGS (1)
  1. FORTEO [Suspect]
     Active Substance: TERIPARATIDE
     Indication: OSTEOPOROSIS
     Dosage: 20 UG, QD
     Route: 065
     Dates: start: 20140807, end: 20150507

REACTIONS (7)
  - Pain in extremity [Unknown]
  - Headache [Unknown]
  - Pruritus [Unknown]
  - Muscle spasms [Unknown]
  - Vision blurred [Unknown]
  - Fatigue [Unknown]
  - Back pain [Unknown]
